FAERS Safety Report 6804604-8 (Version None)
Quarter: 2010Q2

REPORT INFORMATION
  Report Type: 
  Country: None (occurrence: None)
  Receive Date: 20100628
  Receipt Date: 20070509
  Transmission Date: 20101027
  Serious: No
  Sender: FDA-Public Use
  Company Number: US-PFIZER INC-2007021820

PATIENT
  Sex: Female
  Weight: 77.56 kg

DRUGS (9)
  1. GEODON [Suspect]
     Indication: MAJOR DEPRESSION
  2. GEODON [Suspect]
     Indication: PSYCHOTIC DISORDER
  3. CYMBALTA [Concomitant]
  4. METFORMIN HCL [Concomitant]
  5. GLIPIZIDE [Concomitant]
  6. MOBIC [Concomitant]
  7. SYNTHROID [Concomitant]
  8. LIPITOR [Concomitant]
  9. ACTONEL [Concomitant]

REACTIONS (3)
  - BRUXISM [None]
  - DYSKINESIA [None]
  - MUSCLE TWITCHING [None]
